FAERS Safety Report 12601910 (Version 1)
Quarter: 2016Q3

REPORT INFORMATION
  Report Type: Spontaneous
  Country: US (occurrence: US)
  Receive Date: 20160728
  Receipt Date: 20160728
  Transmission Date: 20161109
  Serious: Yes (Other)
  Sender: FDA-Public Use
  Company Number: US-JNJFOC-20160721144

PATIENT
  Sex: Female

DRUGS (1)
  1. REMICADE [Suspect]
     Active Substance: INFLIXIMAB
     Indication: PRODUCT USED FOR UNKNOWN INDICATION
     Dosage: STARTED 7 YEARS AGO
     Route: 042
     Dates: start: 2009

REACTIONS (2)
  - Diabetic nephropathy [Not Recovered/Not Resolved]
  - Diabetes mellitus [Unknown]
